FAERS Safety Report 18359556 (Version 1)
Quarter: 2020Q4

REPORT INFORMATION
  Report Type: Spontaneous
  Country: US (occurrence: US)
  Receive Date: 20201008
  Receipt Date: 20201008
  Transmission Date: 20210114
  Serious: No
  Sender: FDA-Public Use
  Company Number: US-MYLANLABS-2020M1079768

PATIENT
  Sex: Female

DRUGS (1)
  1. ESTRADIOL VAGINAL CREAM USP [Suspect]
     Active Substance: ESTRADIOL
     Indication: VAGINAL INFECTION
     Dosage: UNK
     Route: 067

REACTIONS (4)
  - Off label use [Not Recovered/Not Resolved]
  - Product expiration date issue [Not Recovered/Not Resolved]
  - Application site pain [Not Recovered/Not Resolved]
  - Infection [Not Recovered/Not Resolved]
